FAERS Safety Report 10071917 (Version 2)
Quarter: 2014Q2

REPORT INFORMATION
  Report Type: Spontaneous
  Country: AU (occurrence: AU)
  Receive Date: 20140411
  Receipt Date: 20140411
  Transmission Date: 20141212
  Serious: Yes (Other)
  Sender: FDA-Public Use
  Company Number: AU-009507513-1403AUS012106

PATIENT
  Age: 20 Year
  Sex: Female
  Weight: 80 kg

DRUGS (1)
  1. IMPLANON NXT [Suspect]
     Dosage: UNK
     Route: 059
     Dates: start: 20140212, end: 20140228

REACTIONS (4)
  - Device expulsion [Recovered/Resolved]
  - Skin reaction [Recovered/Resolved]
  - Device deployment issue [Recovered/Resolved]
  - Medication error [Unknown]
